FAERS Safety Report 11858846 (Version 1)
Quarter: 2015Q4

REPORT INFORMATION
  Report Type: Spontaneous
  Country: KR (occurrence: KR)
  Receive Date: 20151222
  Receipt Date: 20151222
  Transmission Date: 20160305
  Serious: Yes (Hospitalization)
  Sender: FDA-Public Use
  Company Number: KR-AMGEN-KORCT2015136506

PATIENT
  Age: 35 Year
  Sex: Female
  Weight: 53.3 kg

DRUGS (29)
  1. CYTARABINE. [Concomitant]
     Active Substance: CYTARABINE
     Dosage: 3100 MG, UNK
     Route: 042
     Dates: start: 20141012, end: 20141012
  2. GASTER [Concomitant]
     Active Substance: FAMOTIDINE
     Dosage: 20 MG, UNK
     Route: 042
     Dates: start: 20140811, end: 20150322
  3. CYTARABINE. [Concomitant]
     Active Substance: CYTARABINE
     Dosage: 3100 MG, UNK
     Route: 042
     Dates: start: 20140912, end: 20140912
  4. MECOBALAMIN [Concomitant]
     Active Substance: METHYLCOBALAMIN
     Dosage: 1.5 MG, UNK
     Route: 048
     Dates: start: 20140811
  5. EMEND [Concomitant]
     Active Substance: APREPITANT
     Dosage: 150 MG, UNK
     Route: 042
     Dates: start: 20140811, end: 20150319
  6. SUSPEN ER [Concomitant]
     Dosage: 650 MG, UNK
     Route: 048
     Dates: start: 20140814, end: 20141013
  7. CHLORPHENIRAMINE MALEATE. [Concomitant]
     Active Substance: CHLORPHENIRAMINE MALEATE
     Dosage: 4 MG, UNK
     Route: 042
     Dates: start: 20140813, end: 20140822
  8. G-LASTA [Suspect]
     Active Substance: PEGFILGRASTIM
     Dosage: 6 MG, 1X/3WEEKS
     Route: 058
     Dates: start: 20150323
  9. CISPLATIN. [Concomitant]
     Active Substance: CISPLATIN
     Dosage: 155 MG, UNK
     Route: 042
     Dates: start: 20141011, end: 20141011
  10. PYRIDOXINE [Concomitant]
     Active Substance: PYRIDOXINE
     Dosage: 2000 MG, UNK
     Route: 048
     Dates: start: 20140811
  11. ALOXI [Concomitant]
     Active Substance: PALONOSETRON HYDROCHLORIDE
     Dosage: 0.25 MG, UNK
     Route: 042
     Dates: start: 20140811, end: 20150319
  12. FOLIC ACID. [Concomitant]
     Active Substance: FOLIC ACID
     Dosage: 1 MG, UNK
     Route: 048
     Dates: start: 20140811
  13. TAZOPERAN [Concomitant]
     Dosage: 18 G, UNK
     Route: 042
     Dates: start: 20140914, end: 20140915
  14. G-LASTA [Suspect]
     Active Substance: PEGFILGRASTIM
     Indication: FEBRILE NEUTROPENIA
     Dosage: 6 MG, 1X/3WEEKS
     Route: 058
     Dates: start: 20140815
  15. CISPLATIN. [Concomitant]
     Active Substance: CISPLATIN
     Dosage: 155 MG, UNK
     Route: 042
     Dates: start: 20140811, end: 20140811
  16. ACTINAMIDE [Concomitant]
     Dosage: 1 MG, UNK
     Route: 042
     Dates: start: 20140812, end: 20140814
  17. G-LASTA [Suspect]
     Active Substance: PEGFILGRASTIM
     Dosage: 6 MG, 1X/3WEEKS
     Route: 058
     Dates: start: 20141016
  18. DEXAMETHASONE. [Concomitant]
     Active Substance: DEXAMETHASONE
     Dosage: 40 MG, UNK
     Route: 042
     Dates: start: 20140811, end: 20140814
  19. DEXAMETHASONE. [Concomitant]
     Active Substance: DEXAMETHASONE
     Dosage: 40 MG, UNK
     Route: 042
     Dates: start: 20150319, end: 20150322
  20. CYTARABINE. [Concomitant]
     Active Substance: CYTARABINE
     Dosage: 3100 MG, UNK
     Route: 042
     Dates: start: 20140812, end: 20140812
  21. CISPLATIN. [Concomitant]
     Active Substance: CISPLATIN
     Dosage: 155 MG, UNK
     Route: 042
     Dates: start: 20140911, end: 20140911
  22. TAMIPOOL [Concomitant]
     Active Substance: VITAMINS
     Dosage: 713 MG, UNK
     Route: 048
     Dates: start: 20150320, end: 20150321
  23. G-LASTA [Suspect]
     Active Substance: PEGFILGRASTIM
     Dosage: 6 MG, 1X/3WEEKS
     Route: 058
     Dates: start: 20140916
  24. DEXAMETHASONE. [Concomitant]
     Active Substance: DEXAMETHASONE
     Dosage: 40 MG, UNK
     Route: 042
     Dates: start: 20140911, end: 20140914
  25. DEXAMETHASONE. [Concomitant]
     Active Substance: DEXAMETHASONE
     Dosage: 40 MG, UNK
     Route: 042
     Dates: start: 20141011, end: 20141014
  26. VITAMIN C [Concomitant]
     Active Substance: ASCORBIC ACID
     Dosage: 1000 MG, UNK
     Dates: start: 20140811
  27. CYTARABINE. [Concomitant]
     Active Substance: CYTARABINE
     Dosage: 3100 MG, UNK
     Route: 042
     Dates: start: 20150320, end: 20150320
  28. CISPLATIN. [Concomitant]
     Active Substance: CISPLATIN
     Dosage: 155 MG, UNK
     Route: 042
     Dates: start: 20150319, end: 20150319
  29. LASIX [Concomitant]
     Active Substance: FUROSEMIDE
     Dosage: 20 MG, UNK
     Route: 042
     Dates: start: 20140812, end: 20140915

REACTIONS (1)
  - Pyrexia [Recovered/Resolved]

NARRATIVE: CASE EVENT DATE: 20150321
